FAERS Safety Report 6716430-9 (Version None)
Quarter: 2010Q2

REPORT INFORMATION
  Report Type: 
  Country: None (occurrence: None)
  Receive Date: 20100507
  Receipt Date: 20100426
  Transmission Date: 20101027
  Serious: Yes (Hospitalization)
  Sender: FDA-Public Use
  Company Number: US-MYLANLABS-2010S1005962

PATIENT
  Age: 19 Year
  Sex: Male

DRUGS (6)
  1. AMNESTEEM [Suspect]
     Indication: ACNE
     Route: 048
     Dates: start: 20100115, end: 20100322
  2. AMNESTEEM [Suspect]
     Route: 048
     Dates: start: 20100323, end: 20100328
  3. AMNESTEEM [Suspect]
     Route: 048
     Dates: start: 20100323, end: 20100328
  4. CLARAVIS [Suspect]
     Indication: ACNE
     Route: 048
  5. ADDERALL XR 10 [Concomitant]
  6. ADDERALL XR 10 [Concomitant]
     Dosage: AT 4:00PM

REACTIONS (5)
  - ABNORMAL BEHAVIOUR [None]
  - ANTISOCIAL BEHAVIOUR [None]
  - FLIGHT OF IDEAS [None]
  - IRREGULAR SLEEP PHASE [None]
  - MENTAL DISORDER [None]
